FAERS Safety Report 19752768 (Version 1)
Quarter: 2021Q3

REPORT INFORMATION
  Report Type: Report from Study
  Country: US (occurrence: US)
  Receive Date: 20210826
  Receipt Date: 20210826
  Transmission Date: 20211014
  Serious: Yes (Other)
  Sender: FDA-Public Use
  Company Number: US-TAKEDA-2021TUS053263

PATIENT
  Age: 14 Year
  Sex: Male

DRUGS (6)
  1. HUMAN COAGULATION FACTOR VIII (RECOMBINANT) UNSPECIFIED [Suspect]
     Active Substance: ANTIHEMOPHILIC FACTOR, HUMAN RECOMBINANT
     Indication: FACTOR VIII DEFICIENCY
     Dosage: 20 INTERNATIONAL UNIT/KILOGRAM, 3/WEEK
     Route: 065
     Dates: start: 2020
  2. HUMAN COAGULATION FACTOR VIII (RECOMBINANT) UNSPECIFIED [Suspect]
     Active Substance: ANTIHEMOPHILIC FACTOR, HUMAN RECOMBINANT
     Indication: FACTOR VIII DEFICIENCY
     Dosage: 20 INTERNATIONAL UNIT/KILOGRAM, 3/WEEK
     Route: 065
     Dates: start: 2020
  3. HUMAN COAGULATION FACTOR VIII (RECOMBINANT) UNSPECIFIED [Suspect]
     Active Substance: ANTIHEMOPHILIC FACTOR, HUMAN RECOMBINANT
     Indication: PROPHYLAXIS
  4. HUMAN COAGULATION FACTOR VIII (RECOMBINANT) UNSPECIFIED [Suspect]
     Active Substance: ANTIHEMOPHILIC FACTOR, HUMAN RECOMBINANT
     Indication: PROPHYLAXIS
  5. HUMAN COAGULATION FACTOR VIII (RECOMBINANT) UNSPECIFIED [Suspect]
     Active Substance: ANTIHEMOPHILIC FACTOR, HUMAN RECOMBINANT
     Indication: FACTOR VIII DEFICIENCY
     Dosage: 20 INTERNATIONAL UNIT/KILOGRAM, 3/WEEK
     Route: 065
     Dates: start: 2020
  6. HUMAN COAGULATION FACTOR VIII (RECOMBINANT) UNSPECIFIED [Suspect]
     Active Substance: ANTIHEMOPHILIC FACTOR, HUMAN RECOMBINANT
     Indication: PROPHYLAXIS

REACTIONS (2)
  - Haemorrhage [Unknown]
  - Drug ineffective [Unknown]
